FAERS Safety Report 18206862 (Version 1)
Quarter: 2020Q3

REPORT INFORMATION
  Report Type: Spontaneous
  Country: US (occurrence: US)
  Receive Date: 20200827
  Receipt Date: 20200827
  Transmission Date: 20201103
  Serious: No
  Sender: FDA-Public Use
  Company Number: None

PATIENT
  Age: 62 Year
  Sex: Male

DRUGS (1)
  1. LEVETIRACETAM 500MG TABLETBH TA 500MG [Suspect]
     Active Substance: LEVETIRACETAM
     Route: 048
     Dates: start: 20200805

REACTIONS (2)
  - Nausea [None]
  - Somnolence [None]

NARRATIVE: CASE EVENT DATE: 20200813
